FAERS Safety Report 14538010 (Version 6)
Quarter: 2018Q2

REPORT INFORMATION
  Report Type: Report from Study
  Country: ES (occurrence: ES)
  Receive Date: 20180216
  Receipt Date: 20180627
  Transmission Date: 20180711
  Serious: Yes (Death, Hospitalization)
  Sender: FDA-Public Use
  Company Number: ES-ROCHE-2050962

PATIENT
  Age: 46 Year
  Sex: Male
  Weight: 83 kg

DRUGS (66)
  1. DOXYCYCLINE. [Concomitant]
     Active Substance: DOXYCYCLINE
     Indication: RASH
     Route: 048
     Dates: start: 20171227, end: 20180102
  2. CENTELLA ASIATICA [Concomitant]
     Active Substance: CENTELLA ASIATICA
     Indication: RASH
     Dosage: 1 OTHER?EXTO.,/
     Route: 061
     Dates: start: 20180102, end: 20180104
  3. FITOMENADIONE [Concomitant]
     Dosage: PROPHYLAXIS BLOOD COAGULATION
     Route: 042
     Dates: start: 20180113, end: 20180117
  4. MAGNESIUM HYDROXIDE. [Concomitant]
     Active Substance: MAGNESIUM HYDROXIDE
     Indication: CONSTIPATION
     Dosage: 1 OTHER
     Route: 048
     Dates: start: 20180113, end: 20180114
  5. TEICOPLANINE [Concomitant]
     Active Substance: TEICOPLANIN
     Indication: INFECTION
     Route: 042
     Dates: start: 20180119, end: 20180121
  6. METRONIDAZOL [Concomitant]
     Active Substance: METRONIDAZOLE
     Indication: INFECTION
     Route: 042
     Dates: start: 20180116, end: 20180117
  7. MICAFUNGINA [Concomitant]
     Active Substance: MICAFUNGIN
     Indication: CANDIDA INFECTION
     Route: 042
     Dates: start: 20180117, end: 20180117
  8. BEVACIZUMAB. [Suspect]
     Active Substance: BEVACIZUMAB
     Indication: COLORECTAL CANCER
     Dosage: DATE OF MOST RECENT DOSE OF BEVACIZUMAB PRIOR TO SAE ONSET: 27/DEC/2017
     Route: 042
     Dates: start: 20171211, end: 20180109
  9. POLYVINYL ALCOHOL [Concomitant]
     Active Substance: POLYVINYL ALCOHOL
     Indication: PROPHYLAXIS
     Dosage: DRY EYE PROPHYLAXIS
     Route: 047
     Dates: start: 20180102
  10. LORAZEPAM. [Concomitant]
     Active Substance: LORAZEPAM
     Indication: RASH
     Dosage: PROPHYLAXIS INSOMNIA
     Route: 048
     Dates: start: 20180102, end: 20180104
  11. CODEINE PHOSPHATE, HEMIHYDRATE [Concomitant]
     Indication: PROPHYLAXIS
     Dosage: 2 TBSP (TABLESPOON DOSING UNIT)
     Route: 048
     Dates: start: 20171227, end: 20180102
  12. NEOMYCIN. [Concomitant]
     Active Substance: NEOMYCIN
     Indication: RASH
     Dosage: 1 OTHER
     Route: 061
     Dates: start: 20180102, end: 20180108
  13. PANTOPRAZOL [Concomitant]
     Active Substance: PANTOPRAZOLE SODIUM
     Route: 042
     Dates: start: 20180108, end: 20180113
  14. ONDANSETRON [Concomitant]
     Active Substance: ONDANSETRON
     Indication: VOMITING
     Route: 042
     Dates: start: 20180111, end: 20180113
  15. ENOXAPARIN [Concomitant]
     Active Substance: ENOXAPARIN
     Route: 042
     Dates: start: 20180109, end: 20180117
  16. MEROPENEM. [Concomitant]
     Active Substance: MEROPENEM
     Indication: INFECTION
     Route: 042
     Dates: start: 20180109, end: 20180116
  17. CIPROFLOXACIN. [Concomitant]
     Active Substance: CIPROFLOXACIN
     Indication: INFECTION
     Route: 042
     Dates: start: 20180116, end: 20180117
  18. DEXKETOPROFEN [Concomitant]
     Active Substance: DEXKETOPROFEN
     Route: 042
     Dates: start: 20180111, end: 20180116
  19. ORFIDAL [Concomitant]
     Active Substance: LORAZEPAM
     Route: 048
  20. DEXKETOPROFEN [Concomitant]
     Active Substance: DEXKETOPROFEN
     Indication: PAIN PROPHYLAXIS
     Route: 048
     Dates: start: 20171211, end: 20171218
  21. FORASEQ [Concomitant]
     Active Substance: BUDESONIDE\FORMOTEROL FUMARATE
     Indication: DIARRHOEA
     Route: 048
     Dates: start: 20171227
  22. CODEISAN [Concomitant]
     Active Substance: CODEINE PHOSPHATE
     Dosage: 2 TBSP (TABLESPOON DOSING UNIT)
     Route: 048
     Dates: start: 20171227
  23. CETIRIZINE [Concomitant]
     Active Substance: CETIRIZINE HYDROCHLORIDE
     Indication: RASH
     Route: 048
     Dates: start: 20171227, end: 20180102
  24. LORAZEPAM. [Concomitant]
     Active Substance: LORAZEPAM
     Indication: PROPHYLAXIS
     Route: 048
     Dates: start: 20180102
  25. LOPERAMIDE [Concomitant]
     Active Substance: LOPERAMIDE
     Indication: DIARRHOEA
     Route: 048
     Dates: start: 20171227, end: 20180108
  26. SALINE [Concomitant]
     Active Substance: SODIUM CHLORIDE
     Indication: DEHYDRATION
     Route: 042
     Dates: start: 20180102, end: 20180104
  27. HYDROCORTISONE. [Concomitant]
     Active Substance: HYDROCORTISONE
     Indication: PAIN
     Route: 042
     Dates: start: 20180117, end: 20180119
  28. HYDROCORTISONE. [Concomitant]
     Active Substance: HYDROCORTISONE
     Route: 048
     Dates: start: 20180117, end: 20180117
  29. SYNALAR [Concomitant]
     Active Substance: FLUOCINOLONE ACETONIDE
     Indication: RASH
     Route: 048
     Dates: start: 20171227
  30. PREDNISONE. [Concomitant]
     Active Substance: PREDNISONE
     Indication: RASH
     Route: 048
     Dates: start: 20180104, end: 20180108
  31. SALINE [Concomitant]
     Active Substance: SODIUM CHLORIDE
     Dosage: PROPHYLAXIS DEHYDRATION
     Route: 042
     Dates: start: 20180108, end: 20180111
  32. PIPERACILLIN/TAZOBACTAM [Concomitant]
     Active Substance: PIPERACILLIN SODIUM\TAZOBACTAM SODIUM
     Indication: INFECTION PROPHYLAXIS
     Route: 042
     Dates: start: 20180108, end: 20180108
  33. METOCLOPRAMIDE. [Concomitant]
     Active Substance: METOCLOPRAMIDE
     Dosage: PROPHYLAXIS NAUSEA
     Route: 042
     Dates: start: 20180115, end: 20180117
  34. NORADRENALINE [Concomitant]
     Active Substance: NOREPINEPHRINE
     Indication: RESUSCITATION
     Route: 042
     Dates: start: 20180109, end: 20180109
  35. MIDAZOLAM [Concomitant]
     Active Substance: MIDAZOLAM HYDROCHLORIDE
     Indication: SEDATION
     Route: 042
     Dates: start: 20180119, end: 20180120
  36. AMOXICILLIN/CLAVULANIC ACID [Concomitant]
     Active Substance: AMOXICILLIN\CLAVULANIC ACID
     Indication: INFECTION PROPHYLAXIS
  37. METAMIZOL [Concomitant]
     Active Substance: METAMIZOLE SODIUM
     Indication: PAIN
     Route: 042
     Dates: start: 20180102, end: 20180104
  38. FITOMENADIONE [Concomitant]
     Route: 042
     Dates: start: 20180108, end: 20180108
  39. FITOMENADIONE [Concomitant]
     Dosage: PROPHYLAXIS BLOOD COAGULATION
     Route: 042
     Dates: start: 20180109, end: 20180110
  40. HYDROCORTISONE. [Concomitant]
     Active Substance: HYDROCORTISONE
     Route: 042
     Dates: start: 20180119, end: 20180120
  41. FLUCONAZOL [Concomitant]
     Active Substance: FLUCONAZOLE
     Indication: INFECTION
     Route: 042
     Dates: start: 20180117, end: 20180117
  42. MORPHINE SULFATE. [Concomitant]
     Active Substance: MORPHINE SULFATE
     Indication: PAIN
     Route: 042
     Dates: start: 20180109, end: 20180113
  43. PARACETAMOL [Concomitant]
     Active Substance: ACETAMINOPHEN
     Indication: BACK PAIN
     Dosage: PROPHYLAXIS PAIN
     Route: 042
     Dates: start: 20180109, end: 20180117
  44. PARACETAMOL [Concomitant]
     Active Substance: ACETAMINOPHEN
     Route: 048
     Dates: end: 20171218
  45. CETIRIZINE [Concomitant]
     Active Substance: CETIRIZINE HYDROCHLORIDE
     Route: 048
     Dates: start: 20180102, end: 20180104
  46. GLUCOSE [Concomitant]
     Active Substance: DEXTROSE
     Indication: DEHYDRATION
     Route: 042
     Dates: start: 20180102, end: 20180104
  47. BETAMETHASONE. [Concomitant]
     Active Substance: BETAMETHASONE
     Indication: RASH
     Dosage: 1 OTHER
     Route: 061
     Dates: start: 20180102, end: 20180104
  48. METAMIZOL [Concomitant]
     Active Substance: METAMIZOLE SODIUM
     Indication: INFECTION PROPHYLAXIS
  49. PIPERACILLIN/TAZOBACTAM [Concomitant]
     Active Substance: PIPERACILLIN SODIUM\TAZOBACTAM SODIUM
     Dosage: PROPHYLAXIS INFECTION
     Route: 042
     Dates: start: 20180117, end: 20180117
  50. METOCLOPRAMIDE. [Concomitant]
     Active Substance: METOCLOPRAMIDE
     Indication: NAUSEA
     Route: 042
     Dates: start: 20180111, end: 20180113
  51. MICAFUNGINA [Concomitant]
     Active Substance: MICAFUNGIN
     Dosage: PROPHYLAXIS CANDIDA INFECTION
     Route: 042
     Dates: start: 20180117, end: 20180122
  52. DEXKETOPROFEN [Concomitant]
     Active Substance: DEXKETOPROFEN
     Indication: PAIN
     Route: 042
     Dates: start: 20180109, end: 20180111
  53. COBIMETINIB. [Suspect]
     Active Substance: COBIMETINIB
     Indication: COLORECTAL CANCER
     Dosage: DATE OF MOST RECENT DOSE OF COBIMETINIB PRIOR TO AE ONSET: 31/DEC/2017
     Route: 048
     Dates: start: 20171211, end: 20180109
  54. PARACETAMOL [Concomitant]
     Active Substance: ACETAMINOPHEN
     Indication: PAIN PROPHYLAXIS
     Route: 048
     Dates: start: 20180102, end: 20180104
  55. DEXKETOPROFEN [Concomitant]
     Active Substance: DEXKETOPROFEN
     Indication: BACK PAIN
     Route: 048
     Dates: start: 20171218, end: 20180102
  56. AMOXICILLIN/CLAVULANIC ACID [Concomitant]
     Active Substance: AMOXICILLIN\CLAVULANIC ACID
     Indication: RASH
     Route: 042
     Dates: start: 20180102, end: 20180104
  57. METOCLOPRAMIDE. [Concomitant]
     Active Substance: METOCLOPRAMIDE
     Indication: PROPHYLAXIS OF NAUSEA AND VOMITING
     Dosage: PROPHYLAXIS NAUSEA
     Route: 042
     Dates: start: 20180113, end: 20180115
  58. NORADRENALINE [Concomitant]
     Active Substance: NOREPINEPHRINE
     Dosage: PROPHYLAXIS CARDIOPULMONARY RESUSCITATION
     Route: 042
     Dates: start: 20180118, end: 20180119
  59. ATEZOLIZUMAB. [Suspect]
     Active Substance: ATEZOLIZUMAB
     Indication: COLORECTAL CANCER
     Dosage: DATE OF MOST RECENT DOSE OF ATEZOLIZUMAB PRIOR TO AE ONSET: 27/DEC/2017
     Route: 042
     Dates: start: 20171211, end: 20180109
  60. PARACETAMOL [Concomitant]
     Active Substance: ACETAMINOPHEN
     Route: 048
     Dates: start: 20171218, end: 20180102
  61. ATORVASTATIN [Concomitant]
     Active Substance: ATORVASTATIN
     Indication: DYSLIPIDAEMIA
     Route: 048
     Dates: start: 20171115, end: 20180108
  62. FLUOCINOLONE ACETONIDE. [Concomitant]
     Active Substance: FLUOCINOLONE ACETONIDE
     Indication: RASH
     Dosage: 1 OTHER
     Route: 061
     Dates: start: 20171227, end: 20180102
  63. SEPTRIN FORTE [Concomitant]
     Active Substance: SULFAMETHOXAZOLE\TRIMETHOPRIM
     Indication: RASH
     Route: 048
     Dates: start: 20180104, end: 20180108
  64. MORPHINE [Concomitant]
     Active Substance: MORPHINE
     Indication: PAIN
     Route: 042
     Dates: start: 20180108, end: 20180108
  65. OMEPRAZOL [Concomitant]
     Active Substance: OMEPRAZOLE
     Indication: GASTRITIS
     Route: 048
     Dates: start: 20180113, end: 20180115
  66. TRAMADOL. [Concomitant]
     Active Substance: TRAMADOL
     Indication: PAIN
     Route: 042
     Dates: start: 20180111, end: 20180117

REACTIONS (3)
  - Gastrointestinal necrosis [Fatal]
  - Sepsis [Fatal]
  - Hyperbilirubinaemia [Recovered/Resolved]

NARRATIVE: CASE EVENT DATE: 20180102
